FAERS Safety Report 12800328 (Version 1)
Quarter: 2016Q3

REPORT INFORMATION
  Report Type: Spontaneous
  Country: FR (occurrence: FR)
  Receive Date: 20160930
  Receipt Date: 20160930
  Transmission Date: 20161109
  Serious: Yes (Hospitalization, Other)
  Sender: FDA-Public Use
  Company Number: FR-ASTRAZENECA-2016SF03389

PATIENT
  Age: 79 Year
  Sex: Female

DRUGS (7)
  1. PARACETAMOL [Concomitant]
     Active Substance: ACETAMINOPHEN
     Dosage: 1.0G AS REQUIRED
     Route: 040
     Dates: start: 20160803
  2. KOMBOGLYZE [Suspect]
     Active Substance: METFORMIN HYDROCHLORIDE\SAXAGLIPTIN
     Indication: TYPE 2 DIABETES MELLITUS
     Route: 048
     Dates: end: 20160803
  3. AMLOR [Concomitant]
     Active Substance: AMLODIPINE BESYLATE
     Route: 048
     Dates: start: 2008
  4. IRBESARTAN. [Concomitant]
     Active Substance: IRBESARTAN
     Route: 048
     Dates: start: 2008
  5. EZETROL [Suspect]
     Active Substance: EZETIMIBE
     Indication: MYOCARDIAL INFARCTION
     Route: 048
     Dates: start: 2008, end: 20160803
  6. KARDEGIC [Concomitant]
     Active Substance: ASPIRIN LYSINE
     Route: 048
     Dates: start: 2008
  7. BISOPROLOL [Concomitant]
     Active Substance: BISOPROLOL
     Route: 048
     Dates: start: 2008

REACTIONS (3)
  - Toxic skin eruption [Recovered/Resolved]
  - Jaundice [Unknown]
  - Bile duct adenocarcinoma [Unknown]

NARRATIVE: CASE EVENT DATE: 2016
